FAERS Safety Report 15291541 (Version 1)
Quarter: 2018Q3

REPORT INFORMATION
  Report Type: Report from Study
  Country: US (occurrence: US)
  Receive Date: 20180817
  Receipt Date: 20180817
  Transmission Date: 20181010
  Serious: Yes (Hospitalization)
  Sender: FDA-Public Use
  Company Number: US-ACTELION-A-US2017-161362

PATIENT
  Age: 78 Year
  Sex: Female

DRUGS (1)
  1. OPSUMIT [Suspect]
     Active Substance: MACITENTAN
     Indication: PULMONARY ARTERIAL HYPERTENSION
     Dosage: 10 MG, QD
     Route: 048
     Dates: start: 20170825

REACTIONS (13)
  - Throat irritation [Not Recovered/Not Resolved]
  - Urinary tract infection [Recovered/Resolved]
  - Pulmonary oedema [Recovering/Resolving]
  - Nausea [Recovered/Resolved]
  - Constipation [Unknown]
  - Anaemia [Unknown]
  - Condition aggravated [Unknown]
  - Cardiac failure congestive [Recovering/Resolving]
  - Dyspnoea [Recovering/Resolving]
  - Gastrooesophageal reflux disease [Not Recovered/Not Resolved]
  - Pulmonary hypertension [Unknown]
  - Transfusion [Unknown]
  - Internal haemorrhage [Unknown]

NARRATIVE: CASE EVENT DATE: 201710
